FAERS Safety Report 5737208-9 (Version None)
Quarter: 2008Q2

REPORT INFORMATION
  Report Type: 
  Country: None (occurrence: None)
  Receive Date: 20080514
  Receipt Date: 20080502
  Transmission Date: 20081010
  Serious: Yes (Other)
  Sender: FDA-Public Use
  Company Number: DE-BAYER-200815742GPV

PATIENT
  Age: 55 Year
  Sex: Female
  Weight: 57 kg

DRUGS (3)
  1. INTERFERON BETA-1B / INTERFERON BETA-1B, REKOMBINANT [Suspect]
     Indication: DRUG USE FOR UNKNOWN INDICATION
     Route: 058
  2. REBIF [Concomitant]
  3. BACLOFEN [Concomitant]
     Indication: DRUG USE FOR UNKNOWN INDICATION

REACTIONS (7)
  - ANGINA PECTORIS [None]
  - ARTHRALGIA [None]
  - BICUSPID AORTIC VALVE [None]
  - FEELING HOT [None]
  - HYPERHIDROSIS [None]
  - PAIN IN EXTREMITY [None]
  - PALPITATIONS [None]
